FAERS Safety Report 9921170 (Version 1)
Quarter: 2014Q1

REPORT INFORMATION
  Report Type: Spontaneous
  Country: US (occurrence: None)
  Receive Date: 20140221
  Receipt Date: 20140221
  Transmission Date: 20141002
  Serious: Yes (Death)
  Sender: FDA-Public Use
  Company Number: None

PATIENT
  Age: 69 Year
  Sex: Male
  Weight: 93.2 kg

DRUGS (10)
  1. DABIGATRAN [Suspect]
     Indication: ATRIAL FIBRILLATION
     Dosage: }1 YEAR
     Route: 048
  2. COREG [Concomitant]
  3. CRESTOR [Concomitant]
  4. NIASPAN [Concomitant]
  5. RANEXA [Concomitant]
  6. ZETIA [Concomitant]
  7. DIGOXIN [Concomitant]
  8. TAMSULOSIN [Concomitant]
  9. VITAMIN D3 [Concomitant]
  10. METFORMIN [Concomitant]

REACTIONS (3)
  - Subdural haematoma [None]
  - Brain herniation [None]
  - Brain compression [None]
